FAERS Safety Report 10966199 (Version 1)
Quarter: 2015Q1

REPORT INFORMATION
  Report Type: Spontaneous
  Country: US (occurrence: US)
  Receive Date: 20150330
  Receipt Date: 20150330
  Transmission Date: 20150721
  Serious: No
  Sender: FDA-Public Use
  Company Number: US-MYLANLABS-2014S1009462

PATIENT
  Sex: Female

DRUGS (2)
  1. ESTRACE [Concomitant]
     Active Substance: ESTRADIOL
     Indication: OESTROGEN REPLACEMENT THERAPY
     Dosage: UNK
     Dates: start: 2012, end: 2013
  2. FENTANYL TRANSDERMAL SYSTEM [Suspect]
     Active Substance: FENTANYL
     Indication: PAIN
     Dosage: 50 ?G,QH
     Route: 062

REACTIONS (2)
  - Wrong technique in drug usage process [Not Recovered/Not Resolved]
  - Hyperhidrosis [Not Recovered/Not Resolved]
